FAERS Safety Report 9639489 (Version 3)
Quarter: 2013Q4

REPORT INFORMATION
  Report Type: Spontaneous
  Country: AT (occurrence: AT)
  Receive Date: 20131023
  Receipt Date: 20131209
  Transmission Date: 20140711
  Serious: Yes (Hospitalization, Other)
  Sender: FDA-Public Use
  Company Number: AT-AMGEN-AUTSP2013073399

PATIENT
  Age: 84 Year
  Sex: Female

DRUGS (6)
  1. XGEVA [Suspect]
     Indication: PLASMA CELL MYELOMA
     Dosage: 120 MG, QMO
     Route: 058
     Dates: start: 201205, end: 20130902
  2. REVLIMID [Concomitant]
     Indication: PLASMA CELL MYELOMA
     Route: 048
  3. HYDAL [Concomitant]
     Dosage: 16 MG, UNK
     Route: 048
  4. LOVENOX [Concomitant]
     Dosage: 60 G, UNK
     Route: 058
  5. RESTEX [Concomitant]
     Route: 048
  6. DETRUSITOL [Concomitant]
     Dosage: 5 MG, UNK
     Route: 048

REACTIONS (1)
  - Osteonecrosis of jaw [Not Recovered/Not Resolved]
